FAERS Safety Report 8403088-6 (Version None)
Quarter: 2012Q2

REPORT INFORMATION
  Report Type: 
  Country: None (occurrence: None)
  Receive Date: 20120601
  Receipt Date: 20120522
  Transmission Date: 20120825
  Serious: Yes (Hospitalization)
  Sender: FDA-Public Use
  Company Number: US-ABBOTT-12P-163-0938292-00

PATIENT
  Age: 60 Year
  Sex: Female

DRUGS (10)
  1. ACTIVELLA [Concomitant]
     Indication: HORMONE REPLACEMENT THERAPY
  2. CARAFATE [Concomitant]
     Indication: PRODUCT USED FOR UNKNOWN INDICATION
     Route: 048
  3. MOTIFENE [Concomitant]
     Indication: PRODUCT USED FOR UNKNOWN INDICATION
  4. CRESTOR [Concomitant]
     Indication: PRODUCT USED FOR UNKNOWN INDICATION
     Dosage: 20 MG DAILY
     Route: 048
  5. NIZATIDINE [Concomitant]
     Indication: GASTROOESOPHAGEAL REFLUX DISEASE
     Route: 048
  6. HUMIRA [Suspect]
     Indication: CROHN'S DISEASE
  7. AFRIN [Concomitant]
     Indication: SEASONAL ALLERGY
     Dosage: NASAL SPRAY
     Route: 050
  8. VAGIFEM [Concomitant]
     Indication: PRODUCT USED FOR UNKNOWN INDICATION
     Route: 067
  9. FLURAZEPAM [Concomitant]
     Indication: INSOMNIA
     Route: 048
  10. XANAX [Concomitant]
     Indication: ANXIETY

REACTIONS (11)
  - ABDOMINAL DISCOMFORT [None]
  - CHILLS [None]
  - SOMNOLENCE [None]
  - GASTRITIS HAEMORRHAGIC [None]
  - PNEUMONIA [None]
  - CONFUSIONAL STATE [None]
  - DYSPNOEA [None]
  - PYREXIA [None]
  - VAGINAL FISTULA [None]
  - DELIRIUM [None]
  - BLOOD CHOLESTEROL INCREASED [None]
